FAERS Safety Report 5703053-3 (Version None)
Quarter: 2008Q2

REPORT INFORMATION
  Report Type: 
  Country: None (occurrence: None)
  Receive Date: 20080408
  Receipt Date: 20080401
  Transmission Date: 20081010
  Serious: Yes (Death, Hospitalization)
  Sender: FDA-Public Use
  Company Number: 2008US000971

PATIENT
  Age: 9 Year
  Sex: Male

DRUGS (2)
  1. PROGRAF [Suspect]
     Indication: LIVER TRANSPLANT
     Dosage: 4 MG, UID/QD,ORAL
     Route: 048
     Dates: start: 20060101
  2. CYCLOSPORINE [Suspect]
     Indication: LIVER TRANSPLANT

REACTIONS (6)
  - HAEMORRHAGE [None]
  - HYPOVOLAEMIC SHOCK [None]
  - PYREXIA [None]
  - RENAL FAILURE [None]
  - TRANSPLANT REJECTION [None]
  - VOMITING [None]
